FAERS Safety Report 5504525-7 (Version None)
Quarter: 2007Q4

REPORT INFORMATION
  Report Type: 
  Country: None (occurrence: None)
  Receive Date: 20071030
  Receipt Date: 20071016
  Transmission Date: 20080405
  Serious: Yes (Other)
  Sender: FDA-Public Use
  Company Number: 2007JP004805

PATIENT
  Age: 17 Year
  Sex: Female

DRUGS (1)
  1. PROGRAF [Suspect]
     Indication: CORD BLOOD TRANSPLANT THERAPY

REACTIONS (1)
  - THROMBOTIC MICROANGIOPATHY [None]
